FAERS Safety Report 9302949 (Version 1)
Quarter: 2013Q2

REPORT INFORMATION
  Report Type: Spontaneous
  Country: US (occurrence: US)
  Receive Date: 20130517
  Receipt Date: 20130517
  Transmission Date: 20140414
  Serious: Yes (Other)
  Sender: FDA-Public Use
  Company Number: 2013P1005697

PATIENT
  Age: 79 Year
  Sex: Female

DRUGS (7)
  1. CIPROFLOXACIN [Suspect]
  2. VANCOMYCIN [Suspect]
  3. BUTALBITAL, ASPIRIN AND CAFFEINE TABLETS [Suspect]
  4. ATORVASTATIN [Suspect]
  5. SPIRONOLACTONE [Suspect]
  6. TORADOL [Suspect]
  7. 15 UNSPECIFIED ^HOME MEDICATIONS^ [Concomitant]

REACTIONS (2)
  - Drug reaction with eosinophilia and systemic symptoms [None]
  - Nervous system disorder [None]
